FAERS Safety Report 9549906 (Version 2)
Quarter: 2013Q3

REPORT INFORMATION
  Report Type: Spontaneous
  Country: US (occurrence: US)
  Receive Date: 20130924
  Receipt Date: 20130925
  Transmission Date: 20140515
  Serious: Yes (Other)
  Sender: FDA-Public Use
  Company Number: US-GLAXOSMITHKLINE-A1042489A

PATIENT
  Age: 17 Year
  Sex: Male

DRUGS (1)
  1. BENLYSTA [Suspect]
     Indication: SYSTEMIC LUPUS ERYTHEMATOSUS
     Dosage: 120MG CYCLIC
     Route: 065
     Dates: end: 2012

REACTIONS (5)
  - Coccidioidomycosis [Not Recovered/Not Resolved]
  - Pneumonia [Unknown]
  - Biopsy lung [Unknown]
  - Lung disorder [Unknown]
  - Bronchitis [Unknown]
